FAERS Safety Report 7700647-0 (Version None)
Quarter: 2011Q3

REPORT INFORMATION
  Report Type: 
  Country: None (occurrence: None)
  Receive Date: 20110822
  Receipt Date: 20110822
  Transmission Date: 20111222
  Serious: Yes (Other)
  Sender: FDA-Public Use
  Company Number: None

PATIENT
  Age: 60 Year
  Sex: Female
  Weight: 90.718 kg

DRUGS (2)
  1. CYMBALTA [Suspect]
     Indication: DEPRESSION
     Dosage: 60 MG
     Route: 048
  2. CYMBALTA [Suspect]
     Indication: ANXIETY
     Dosage: 60 MG
     Route: 048

REACTIONS (15)
  - WITHDRAWAL SYNDROME [None]
  - DEPRESSION [None]
  - ANGER [None]
  - FEAR [None]
  - TACHYCARDIA [None]
  - TINNITUS [None]
  - ALOPECIA [None]
  - RENAL FUNCTION TEST ABNORMAL [None]
  - PARAESTHESIA [None]
  - CRYING [None]
  - HEPATIC ENZYME ABNORMAL [None]
  - HYPERTENSION [None]
  - MOOD SWINGS [None]
  - ANXIETY [None]
  - WEIGHT INCREASED [None]
